FAERS Safety Report 10038256 (Version 1)
Quarter: 2014Q1

REPORT INFORMATION
  Report Type: Spontaneous
  Country: US (occurrence: US)
  Receive Date: 20140326
  Receipt Date: 20140326
  Transmission Date: 20141002
  Serious: No
  Sender: FDA-Public Use
  Company Number: US-009507513-1403USA011040

PATIENT
  Age: 3 Year
  Sex: Male

DRUGS (4)
  1. CLARITIN ORAL SOLUTION [Suspect]
     Indication: SEASONAL ALLERGY
     Dosage: UNK, UNKNOWN
     Route: 048
  2. CLARITIN ORAL SOLUTION [Suspect]
     Indication: RHINORRHOEA
  3. CLARITIN ORAL SOLUTION [Suspect]
     Indication: EYE SWELLING
  4. ZYRTEC CHILDRENS [Concomitant]
     Indication: SEASONAL ALLERGY
     Dosage: UNK, UNKNOWN

REACTIONS (1)
  - Drug effect decreased [Unknown]
